FAERS Safety Report 24771415 (Version 1)
Quarter: 2024Q4

REPORT INFORMATION
  Report Type: Spontaneous
  Country: US (occurrence: None)
  Receive Date: 20241224
  Receipt Date: 20241224
  Transmission Date: 20250114
  Serious: No
  Sender: Public
  Company Number: None

PATIENT
  Age: 52 Year
  Sex: Female
  Weight: 71.1 kg

DRUGS (4)
  1. CELECOXIB [Suspect]
     Active Substance: CELECOXIB
     Indication: Plantar fasciitis
     Dosage: OTHER QUANTITY : 1 CAPSULE(S);?FREQUENCY : TWICE A DAY;?
     Route: 048
     Dates: start: 20241205, end: 20241224
  2. PROGESTERONE [Concomitant]
     Active Substance: PROGESTERONE
  3. Biest (HRT) [Concomitant]
  4. Azaleic acid cream [Concomitant]

REACTIONS (3)
  - Photopsia [None]
  - Unevaluable event [None]
  - Vision blurred [None]

NARRATIVE: CASE EVENT DATE: 20241224
